FAERS Safety Report 4357309-X (Version None)
Quarter: 2004Q2

REPORT INFORMATION
  Report Type: 
  Country: None (occurrence: None)
  Receive Date: 20040507
  Receipt Date: 20040420
  Transmission Date: 20050107
  Serious: Yes (Other)
  Sender: FDA-Public Use
  Company Number: USA040465380

PATIENT
  Age: 54 Year
  Sex: Female
  Weight: 80 kg

DRUGS (4)
  1. HUMULIN N [Suspect]
     Dosage: 40 U/2 DAY
  2. HUMULIN R [Suspect]
     Dates: end: 20040416
  3. HUMALOG [Suspect]
     Dosage: 15 U/3 DAY
     Dates: start: 20040416
  4. NOVOLIN N [Concomitant]

REACTIONS (9)
  - BLINDNESS UNILATERAL [None]
  - CATARACT [None]
  - DIARRHOEA [None]
  - EYE DISORDER [None]
  - GLAUCOMA [None]
  - INTERVERTEBRAL DISC DISORDER [None]
  - RETINAL DISORDER [None]
  - RETINAL EXUDATES [None]
  - ROAD TRAFFIC ACCIDENT [None]
